FAERS Safety Report 4815220-1 (Version None)
Quarter: 2005Q4

REPORT INFORMATION
  Report Type: 
  Country: None (occurrence: None)
  Receive Date: 20051028
  Receipt Date: 20051021
  Transmission Date: 20060501
  Serious: Yes (Life-Threatening, Hospitalization, Disabling, Other)
  Sender: FDA-Public Use
  Company Number: GB-MERCK-0510GBR00143

PATIENT
  Age: 63 Year
  Sex: Male

DRUGS (11)
  1. DIPYRIDAMOLE [Concomitant]
     Indication: TRANSIENT ISCHAEMIC ATTACK
     Route: 048
     Dates: end: 20050502
  2. ALFUZOSIN HYDROCHLORIDE [Concomitant]
     Indication: PROSTATISM
     Route: 065
     Dates: start: 20050412, end: 20050428
  3. RANITIDINE [Concomitant]
     Indication: POST PROCEDURAL NAUSEA
     Route: 048
     Dates: start: 20050315, end: 20050503
  4. DESLORATADINE [Concomitant]
     Indication: SEASONAL ALLERGY
     Route: 048
     Dates: end: 20050428
  5. ZOCOR [Suspect]
     Indication: TRANSIENT ISCHAEMIC ATTACK
     Route: 048
     Dates: end: 20050429
  6. FUSIDIC ACID [Concomitant]
     Indication: STAPHYLOCOCCAL INFECTION
     Route: 048
     Dates: start: 20050324, end: 20050501
  7. VASOTEC [Concomitant]
     Route: 048
     Dates: end: 20050429
  8. ASPIRIN [Concomitant]
     Indication: TRANSIENT ISCHAEMIC ATTACK
     Route: 048
     Dates: end: 20050503
  9. BISOPROLOL [Concomitant]
     Route: 048
     Dates: start: 20050314, end: 20050419
  10. BISOPROLOL [Concomitant]
     Route: 048
     Dates: start: 20050420, end: 20050502
  11. TEMAZEPAM [Concomitant]
     Route: 048
     Dates: start: 20050314, end: 20050502

REACTIONS (3)
  - ANURIA [None]
  - NEUROPATHY [None]
  - RHABDOMYOLYSIS [None]
